FAERS Safety Report 9437015 (Version 3)
Quarter: 2014Q4

REPORT INFORMATION
  Report Type: Spontaneous
  Country: US (occurrence: US)
  Receive Date: 20130802
  Receipt Date: 20141015
  Transmission Date: 20150529
  Serious: Yes (Other)
  Sender: FDA-Public Use
  Company Number: US-BAYER-2013-093553

PATIENT
  Age: 30 Year
  Sex: Female
  Weight: 68.03 kg

DRUGS (1)
  1. MIRENA [Suspect]
     Active Substance: LEVONORGESTREL
     Indication: CONTRACEPTION
     Dosage: 20 MCG/24HR, CONT
     Route: 015
     Dates: start: 200610, end: 20080319

REACTIONS (6)
  - Post procedural haemorrhage [None]
  - Uterine perforation [None]
  - Embedded device [None]
  - Pain [None]
  - Injury [None]
  - Abdominal pain lower [None]

NARRATIVE: CASE EVENT DATE: 200803
